FAERS Safety Report 6626432-9 (Version None)
Quarter: 2010Q1

REPORT INFORMATION
  Report Type: 
  Country: None (occurrence: None)
  Receive Date: 20100310
  Receipt Date: 20091203
  Transmission Date: 20100710
  Serious: No
  Sender: FDA-Public Use
  Company Number: US-ABBOTT-09P-163-0612173-00

PATIENT
  Sex: Female
  Weight: 76.272 kg

DRUGS (5)
  1. LUPRON DEPOT [Suspect]
     Indication: CYSTITIS INTERSTITIAL
     Route: 058
     Dates: start: 20090601, end: 20090601
  2. LUPRON DEPOT [Suspect]
     Indication: PELVIC PAIN
  3. OXYCONTIN [Concomitant]
     Indication: PELVIC PAIN
     Dosage: APPROXIMATELY 200MG
     Route: 048
  4. SYNTHROID [Concomitant]
     Indication: AUTOIMMUNE THYROIDITIS
     Route: 048
  5. ELMIRON [Concomitant]
     Indication: CYSTITIS INTERSTITIAL
     Route: 048

REACTIONS (3)
  - DRUG INEFFECTIVE [None]
  - OEDEMA [None]
  - WEIGHT INCREASED [None]
